FAERS Safety Report 8404937-8 (Version None)
Quarter: 2012Q2

REPORT INFORMATION
  Report Type: 
  Country: None (occurrence: None)
  Receive Date: 20120601
  Receipt Date: 20120507
  Transmission Date: 20120825
  Serious: No
  Sender: FDA-Public Use
  Company Number: US-ASTRAZENECA-2012SE29232

PATIENT
  Age: 27 Year
  Sex: Male

DRUGS (2)
  1. SEROQUEL [Suspect]
     Route: 048
  2. SEROQUEL [Suspect]
     Dosage: GENERIC
     Route: 048

REACTIONS (4)
  - THINKING ABNORMAL [None]
  - PSYCHOTIC DISORDER [None]
  - SLEEP DISORDER [None]
  - ADVERSE EVENT [None]
